FAERS Safety Report 16185523 (Version 2)
Quarter: 2019Q2

REPORT INFORMATION
  Report Type: Report from Study
  Country: ZA (occurrence: ZA)
  Receive Date: 20190411
  Receipt Date: 20190528
  Transmission Date: 20190711
  Serious: Yes (Hospitalization)
  Sender: FDA-Public Use
  Company Number: ZA-SA-2019SA043286

PATIENT
  Age: 51 Year
  Sex: Male

DRUGS (3)
  1. INSULIN GLULISINE [Suspect]
     Active Substance: INSULIN GLULISINE
     Dosage: BEFORE BREAKFAST - 44UNITS, BEFORE LUNCH- 44 U, BEFORE SUPPER- 44 U, BEFORE BREAKFAST- 40 U, TID
     Route: 065
     Dates: start: 20181210
  2. OPTISULIN (INSULIN GLARGINE) [Suspect]
     Active Substance: INSULIN GLARGINE
     Dosage: 50 U, HS AT BT (BED TIME)
     Dates: start: 20181210
  3. GLUCOPHAGE [Concomitant]
     Active Substance: METFORMIN HYDROCHLORIDE
     Dosage: 1000 MG, BID AT AS (AFTER SUPPER) AND AB (AFTER BREAKFAST)
     Dates: start: 20181210

REACTIONS (8)
  - Diverticulum [Not Recovered/Not Resolved]
  - Glycosylated haemoglobin increased [Unknown]
  - Abdominal pain [Not Recovered/Not Resolved]
  - Therapeutic response decreased [Unknown]
  - Gastrointestinal disorder [Not Recovered/Not Resolved]
  - Nail infection [Not Recovered/Not Resolved]
  - Ingrowing nail [Not Recovered/Not Resolved]
  - Blood glucose increased [Not Recovered/Not Resolved]

NARRATIVE: CASE EVENT DATE: 20190325
